FAERS Safety Report 12305809 (Version 1)
Quarter: 2016Q2

REPORT INFORMATION
  Report Type: Report from Study
  Country: US (occurrence: US)
  Receive Date: 20160426
  Receipt Date: 20160426
  Transmission Date: 20160815
  Serious: Yes (Death, Hospitalization, Other)
  Sender: FDA-Public Use
  Company Number: US-TEVA-608221ACC

PATIENT
  Age: 68 Year
  Sex: Male
  Weight: 116 kg

DRUGS (3)
  1. BENDAMUSTINE HYDROCHLORIDE. [Suspect]
     Active Substance: BENDAMUSTINE HYDROCHLORIDE
     Indication: B-CELL LYMPHOMA
     Dosage: 90 MG/M2 DAILY; CYCLIC (CYCLE 1 OVER 30-60 MINUTES ON DAYS 1 AND 2))
     Route: 042
     Dates: start: 20151012, end: 20151013
  2. VELCADE [Suspect]
     Active Substance: BORTEZOMIB
     Indication: B-CELL LYMPHOMA
     Dosage: (CYCLE 1 IV OR SC OVER 3-5 SECONDS ON DAYS 1, 8, 15, AND 22)
     Route: 065
     Dates: start: 20151012, end: 20151102
  3. OFATUMUMAB [Suspect]
     Active Substance: OFATUMUMAB
     Indication: B-CELL LYMPHOMA
     Dosage: (CYCLE 1 ON DAY 1)
     Route: 042
     Dates: start: 20151012, end: 20151012

REACTIONS (4)
  - Delirium [Recovering/Resolving]
  - Colitis [Recovered/Resolved]
  - Dehydration [Not Recovered/Not Resolved]
  - B-cell lymphoma [Fatal]

NARRATIVE: CASE EVENT DATE: 20151026
